FAERS Safety Report 9022376 (Version 1)
Quarter: 2013Q1

REPORT INFORMATION
  Report Type: Spontaneous
  Country: CN (occurrence: CN)
  Receive Date: 20130118
  Receipt Date: 20130118
  Transmission Date: 20140127
  Serious: Yes (Other)
  Sender: FDA-Public Use
  Company Number: CN-BAYER-2013-006312

PATIENT
  Sex: 0

DRUGS (1)
  1. AVELOX [Suspect]
     Dosage: 250ML:400MG

REACTIONS (1)
  - Liver injury [None]
